FAERS Safety Report 20905338 (Version 1)
Quarter: 2022Q2

REPORT INFORMATION
  Report Type: Spontaneous
  Country: US (occurrence: US)
  Receive Date: 20220602
  Receipt Date: 20220602
  Transmission Date: 20220721
  Serious: No
  Sender: FDA-Public Use
  Company Number: US-BRISTOL-MYERS SQUIBB COMPANY-2022-028579

PATIENT
  Age: 79 Year
  Sex: Female
  Weight: 86.18 kg

DRUGS (4)
  1. ELIQUIS [Suspect]
     Active Substance: APIXABAN
     Indication: Deep vein thrombosis
     Route: 048
     Dates: start: 202109
  2. ELIQUIS [Suspect]
     Active Substance: APIXABAN
     Route: 048
  3. IRBESARTAN [Concomitant]
     Active Substance: IRBESARTAN
     Indication: Product used for unknown indication
  4. LOSARTAN [Concomitant]
     Active Substance: LOSARTAN
     Indication: Product used for unknown indication

REACTIONS (6)
  - Hypertension [Unknown]
  - Stress [Unknown]
  - Pain [Unknown]
  - Sensitivity to weather change [Unknown]
  - Erythema [Unknown]
  - Anxiety [Unknown]

NARRATIVE: CASE EVENT DATE: 20220327
